FAERS Safety Report 5448402-9 (Version None)
Quarter: 2007Q3

REPORT INFORMATION
  Report Type: 
  Country: None (occurrence: None)
  Receive Date: 20070905
  Receipt Date: 20070828
  Transmission Date: 20080115
  Serious: Yes (Other)
  Sender: FDA-Public Use
  Company Number: 2007SP014459

PATIENT
  Age: 46 Year
  Sex: Female

DRUGS (12)
  1. MIRALAX [Suspect]
     Indication: CONSTIPATION
     Dosage: 1 DF; QD; PO
     Route: 048
     Dates: start: 20070101
  2. SINGULAIR [Concomitant]
  3. GLUCOTROL [Concomitant]
  4. PAXIL [Concomitant]
  5. RANITIDINE [Concomitant]
  6. ASPIRIN [Concomitant]
  7. ASCORBIC ACID [Concomitant]
  8. ALBUTEROL [Concomitant]
  9. HYDROCHLOROTHIAZIDE [Concomitant]
  10. LISINOPRIL HYDROCHLORTHIAZID [Concomitant]
  11. LORATADINE [Concomitant]
  12. IBUPROFEN [Concomitant]

REACTIONS (9)
  - CONDITION AGGRAVATED [None]
  - CONSTIPATION [None]
  - CULTURE POSITIVE [None]
  - DIVERTICULAR PERFORATION [None]
  - ESCHERICHIA INFECTION [None]
  - KLEBSIELLA INFECTION [None]
  - NO THERAPEUTIC RESPONSE [None]
  - PERITONITIS [None]
  - PNEUMOPERITONEUM [None]
